FAERS Safety Report 19583538 (Version 1)
Quarter: 2021Q3

REPORT INFORMATION
  Report Type: Spontaneous
  Country: US (occurrence: US)
  Receive Date: 20210720
  Receipt Date: 20210720
  Transmission Date: 20211014
  Serious: Yes (Disabling)
  Sender: FDA-Public Use
  Company Number: None

PATIENT
  Age: 58 Year
  Sex: Female

DRUGS (1)
  1. NEUTROGENA ULTRA SHEER DRY TOUCH SUNSCREEN BROAD SPECTRUM SPF 45 [Suspect]
     Active Substance: AVOBENZONE\HOMOSALATE\OCTISALATE\OCTOCRYLENE
     Indication: NEOPLASM MALIGNANT
     Route: 061
     Dates: start: 20120616, end: 20210718

REACTIONS (3)
  - Basal cell carcinoma [None]
  - Recalled product administered [None]
  - Product contamination [None]

NARRATIVE: CASE EVENT DATE: 20201116
